FAERS Safety Report 10073653 (Version 1)
Quarter: 2014Q2

REPORT INFORMATION
  Report Type: Spontaneous
  Country: GB (occurrence: GB)
  Receive Date: 20140411
  Receipt Date: 20140411
  Transmission Date: 20141212
  Serious: Yes (Other)
  Sender: FDA-Public Use
  Company Number: PHHY2014GB040503

PATIENT
  Age: 79 Year
  Sex: Female
  Weight: 118.8 kg

DRUGS (20)
  1. CALCIPOTRIOL [Suspect]
     Dates: start: 20140317
  2. AQUEOUS CREAM [Concomitant]
     Dates: start: 20131218, end: 20140217
  3. ASPIRIN [Concomitant]
     Dates: start: 20131218, end: 20140217
  4. BENDROFLUMETHIAZIDE [Concomitant]
     Dates: start: 20131210
  5. BISOPROLOL [Concomitant]
     Dates: start: 20131218
  6. CLARITHROMYCIN [Concomitant]
     Dates: start: 20140122, end: 20140129
  7. CLARITHROMYCIN [Concomitant]
     Dates: start: 20140320
  8. CLOBETASONE BUTYRATE [Concomitant]
     Dates: start: 20140120, end: 20140217
  9. CO-CODAMOL [Concomitant]
     Dates: start: 20131218, end: 20140217
  10. DOXYCYCLINE [Concomitant]
     Dates: start: 20140320
  11. E45 [Concomitant]
     Dates: start: 20131218, end: 20131223
  12. E45 [Concomitant]
     Dates: start: 20140120, end: 20140125
  13. GLYCERYL TRINITRATE [Concomitant]
     Dates: start: 20131218, end: 20140115
  14. GLYCERYL TRINITRATE [Concomitant]
     Dates: start: 20140306
  15. HYPROMELLOSE [Concomitant]
     Dates: start: 20131218
  16. IODOFLEX [Concomitant]
     Dates: start: 20140113, end: 20140121
  17. METRONIDAZOLE [Concomitant]
     Dates: start: 20140115, end: 20140129
  18. OILATUM [Concomitant]
     Dates: start: 20140120
  19. PARACETAMOL [Concomitant]
     Dates: start: 20131218
  20. SIMVASTATIN [Concomitant]
     Dates: start: 20131218

REACTIONS (1)
  - Diarrhoea [Recovered/Resolved]
